FAERS Safety Report 9178398 (Version 1)
Quarter: 2012Q4

REPORT INFORMATION
  Report Type: 
  Country: US (occurrence: US)
  Receive Date: 20121029
  Receipt Date: 20121029
  Transmission Date: 20130627
  Serious: Yes (Other)
  Sender: FDA-Public Use
  Company Number: US-SANOFI-AVENTIS-2012SA075910

PATIENT
  Sex: Male

DRUGS (2)
  1. ALLEGRA [Suspect]
     Dosage: 1/2 180 mg
     Route: 048
     Dates: start: 2012
  2. SUDAFED [Concomitant]
     Indication: UPPER RESPIRATORY TRACT CONGESTION

REACTIONS (2)
  - Blood pressure increased [Unknown]
  - Headache [Unknown]
